FAERS Safety Report 24364546 (Version 1)
Quarter: 2024Q3

REPORT INFORMATION
  Report Type: Spontaneous
  Country: US (occurrence: US)
  Receive Date: 20240926
  Receipt Date: 20240926
  Transmission Date: 20241017
  Serious: Yes (Other)
  Sender: CIPLA
  Company Number: US-MLMSERVICE-20240909-PI186795-00293-1

PATIENT

DRUGS (1)
  1. ALBUTEROL [Suspect]
     Active Substance: ALBUTEROL
     Indication: Asthma
     Dosage: UNK, TWO DOSES OF ALBUTEROL INHALER

REACTIONS (2)
  - Unmasking of previously unidentified disease [Unknown]
  - Electrocardiogram QT prolonged [Unknown]
